FAERS Safety Report 8425204-2 (Version None)
Quarter: 2012Q2

REPORT INFORMATION
  Report Type: 
  Country: None (occurrence: None)
  Receive Date: 20120529
  Receipt Date: 20120517
  Transmission Date: 20120825
  Serious: Yes (Other)
  Sender: FDA-Public Use
  Company Number: 2011029321

PATIENT
  Sex: Female
  Weight: 46.2669 kg

DRUGS (10)
  1. HIZENTRA [Suspect]
  2. HIZENTRA [Suspect]
     Indication: IMMUNODEFICIENCY COMMON VARIABLE
     Dosage: SEE IMAGE
     Route: 058
     Dates: start: 20110322
  3. HIZENTRA [Suspect]
     Indication: IMMUNODEFICIENCY COMMON VARIABLE
     Dosage: SEE IMAGE
     Route: 058
     Dates: start: 20110622, end: 20110622
  4. ACETAMINOPHEN [Concomitant]
  5. XYZAL (LEVOTIRIZINE DIHYDROCHLORIDE) [Concomitant]
  6. NUVARING [Concomitant]
  7. DECONEX (GUAI/PE) [Concomitant]
  8. VIVAGLOBIN [Concomitant]
  9. DAILY MULTIVITAMIN (DAILY MULTIVITAMIN) [Concomitant]
  10. ASCORBIC ACID [Concomitant]

REACTIONS (6)
  - ABORTION SPONTANEOUS [None]
  - CHEILITIS [None]
  - MATERNAL EXPOSURE DURING PREGNANCY [None]
  - HEADACHE [None]
  - PRURITUS [None]
  - LIP SWELLING [None]
